FAERS Safety Report 10254135 (Version 4)
Quarter: 2014Q3

REPORT INFORMATION
  Report Type: Spontaneous
  Country: US (occurrence: US)
  Receive Date: 20140624
  Receipt Date: 20140829
  Transmission Date: 20150326
  Serious: No
  Sender: FDA-Public Use
  Company Number: US-009507513-1406USA009732

PATIENT
  Age: 29 Year
  Sex: Female
  Weight: 75.74 kg

DRUGS (1)
  1. IMPLANON [Suspect]
     Active Substance: ETONOGESTREL
     Indication: CONTRACEPTION
     Dosage: ONE ROD ONCE
     Route: 059
     Dates: start: 20110316

REACTIONS (5)
  - Amenorrhoea [Unknown]
  - Weight increased [Unknown]
  - Incorrect drug administration duration [Unknown]
  - Device dislocation [Not Recovered/Not Resolved]
  - Medical device complication [Not Recovered/Not Resolved]

NARRATIVE: CASE EVENT DATE: 20110316
